FAERS Safety Report 10094484 (Version 2)
Quarter: 2014Q2

REPORT INFORMATION
  Report Type: Spontaneous
  Country: US (occurrence: US)
  Receive Date: 20140422
  Receipt Date: 20140526
  Transmission Date: 20141212
  Serious: No
  Sender: FDA-Public Use
  Company Number: US-B.I. PHARMACEUTICALS,INC./RIDGEFIELD-2014-BI-16713BP

PATIENT
  Age: 43 Year
  Sex: Female

DRUGS (8)
  1. MICARDIS HCT TABLETS [Suspect]
     Indication: PRODUCT USED FOR UNKNOWN INDICATION
     Dosage: DOSE PER APPLICATION AND DAILY DOSE: 40 MG/ 12.5 MG
     Route: 048
     Dates: start: 20120910, end: 20130917
  2. MICARDIS HCT TABLETS [Suspect]
     Dosage: DOSE PER APPLICATION: 40 MG/12.5 MG; DAILY DOSE: 80 MG/25 MG
     Route: 055
     Dates: start: 20130917
  3. ALBUTEROL [Concomitant]
     Dosage: FORMULATION: INHALATION AEROSOL
     Route: 055
  4. AMLODIPINE [Concomitant]
     Route: 048
  5. LANTUS [Concomitant]
     Dosage: FORMULATION: SUBCUTANEOUS
     Route: 058
  6. LORATADINE [Concomitant]
     Route: 048
  7. NOVOLOG [Concomitant]
     Dosage: FORMULATION: SUBCUTANEOUS
     Route: 058
  8. SOLOSTAR [Concomitant]
     Dosage: FORMULATION: SUBCUTANEOUS
     Route: 058

REACTIONS (1)
  - Drug administration error [Unknown]
